FAERS Safety Report 5316911-9 (Version None)
Quarter: 2007Q2

REPORT INFORMATION
  Report Type: 
  Country: None (occurrence: None)
  Receive Date: 20070504
  Receipt Date: 20070426
  Transmission Date: 20071010
  Serious: Yes (Other)
  Sender: FDA-Public Use
  Company Number: ES-GLAXOSMITHKLINE-B0469107A

PATIENT
  Age: 65 Year
  Sex: Female

DRUGS (1)
  1. AVANDAMET [Suspect]
     Route: 065
     Dates: start: 20060101, end: 20060101

REACTIONS (4)
  - ABDOMINAL DISTENSION [None]
  - CARDIAC FAILURE CONGESTIVE [None]
  - FLUID RETENTION [None]
  - ORTHOPNOEA [None]
